FAERS Safety Report 12285676 (Version 1)
Quarter: 2016Q2

REPORT INFORMATION
  Report Type: Spontaneous
  Country: BR (occurrence: BR)
  Receive Date: 20160420
  Receipt Date: 20160420
  Transmission Date: 20160815
  Serious: Yes (Other)
  Sender: FDA-Public Use
  Company Number: BR-ROCHE-1745040

PATIENT
  Age: 59 Year
  Sex: Female
  Weight: 62 kg

DRUGS (12)
  1. MABTHERA [Suspect]
     Active Substance: RITUXIMAB
     Indication: RHEUMATOID ARTHRITIS
     Route: 065
  2. NEUPOGEN [Suspect]
     Active Substance: FILGRASTIM
     Indication: PRODUCT USED FOR UNKNOWN INDICATION
     Route: 065
  3. PRESSAT [Concomitant]
     Active Substance: AMLODIPINE BESYLATE
     Route: 065
  4. LABIRIN [Concomitant]
     Active Substance: BETAHISTINE
  5. RISEDROSS [Concomitant]
     Active Substance: RISEDRONATE SODIUM
  6. SIMVASTATIN. [Concomitant]
     Active Substance: SIMVASTATIN
  7. PARACETAMOL [Concomitant]
     Active Substance: ACETAMINOPHEN
  8. PREDSIM [Concomitant]
     Active Substance: PREDNISOLONE
  9. VITAMIN E [Concomitant]
     Active Substance: .ALPHA.-TOCOPHEROL
  10. FOLIC ACID. [Concomitant]
     Active Substance: FOLIC ACID
  11. RANITIDINE HYDROCHLORIDE. [Concomitant]
     Active Substance: RANITIDINE HYDROCHLORIDE
  12. METHOTREXATE [Concomitant]
     Active Substance: METHOTREXATE

REACTIONS (8)
  - Mobility decreased [Unknown]
  - Confusional state [Unknown]
  - Drug hypersensitivity [Not Recovered/Not Resolved]
  - Osteoporosis [Unknown]
  - Platelet count increased [Unknown]
  - Malaise [Unknown]
  - Pain in extremity [Unknown]
  - Labyrinthitis [Not Recovered/Not Resolved]

NARRATIVE: CASE EVENT DATE: 2015
